FAERS Safety Report 5625572-0 (Version None)
Quarter: 2008Q1

REPORT INFORMATION
  Report Type: 
  Country: None (occurrence: None)
  Receive Date: 20080211
  Receipt Date: 20080211
  Transmission Date: 20080703
  Serious: Yes (Disabling)
  Sender: FDA-Public Use
  Company Number: None

PATIENT
  Age: 19 Year
  Sex: Female
  Weight: 58.0604 kg

DRUGS (1)
  1. ISONIAZID [Suspect]
     Indication: TUBERCULOSIS
     Dosage: 2 TWICE A DAY PO
     Route: 048
     Dates: start: 20050908, end: 20060408

REACTIONS (7)
  - ALCOHOL USE [None]
  - ANAEMIA [None]
  - HYPERHIDROSIS [None]
  - IMPAIRED HEALING [None]
  - MALAISE [None]
  - NAUSEA [None]
  - RASH [None]
